FAERS Safety Report 7410097-2 (Version None)
Quarter: 2011Q2

REPORT INFORMATION
  Report Type: 
  Country: None (occurrence: None)
  Receive Date: 20110412
  Receipt Date: 20110307
  Transmission Date: 20111010
  Serious: Yes (Hospitalization, Other)
  Sender: FDA-Public Use
  Company Number: PHHY2010FR79756

PATIENT
  Sex: Male
  Weight: 99 kg

DRUGS (10)
  1. NEXIUM [Concomitant]
  2. AMN107 [Suspect]
     Dosage: 400 MG, BID
     Dates: start: 20081113
  3. LYRICA [Concomitant]
  4. TAMSULOSIN [Concomitant]
  5. ZOLPIDEM [Concomitant]
  6. RAMIPRIL [Concomitant]
  7. SIMVASTATIN [Concomitant]
  8. NEORECORMON [Concomitant]
     Indication: ANAEMIA
     Route: 058
  9. DILTIAZEM [Concomitant]
  10. PLAVIX [Concomitant]

REACTIONS (7)
  - ARTERITIS [None]
  - CEREBELLAR HAEMATOMA [None]
  - DIPLOPIA [None]
  - ARTERIAL THROMBOSIS LIMB [None]
  - ARRHYTHMIA [None]
  - EXTREMITY NECROSIS [None]
  - ATRIAL FIBRILLATION [None]
